FAERS Safety Report 17468398 (Version 1)
Quarter: 2020Q1

REPORT INFORMATION
  Report Type: Spontaneous
  Country: PT (occurrence: PT)
  Receive Date: 20200227
  Receipt Date: 20200227
  Transmission Date: 20200409
  Serious: Yes (Death, Hospitalization)
  Sender: FDA-Public Use
  Company Number: PT-MYLANLABS-2020M1021271

PATIENT
  Sex: Female

DRUGS (2)
  1. PREDNISOLONE. [Suspect]
     Active Substance: PREDNISOLONE
     Indication: IMMUNOSUPPRESSANT DRUG THERAPY
     Dosage: 5 MG, BID
     Route: 065
  2. EVEROLIMUS. [Suspect]
     Active Substance: EVEROLIMUS
     Indication: IMMUNOSUPPRESSANT DRUG THERAPY
     Dosage: 0.25 MG, BID
     Route: 065

REACTIONS (9)
  - Disease recurrence [Unknown]
  - Chest pain [Fatal]
  - Pleural effusion [Fatal]
  - Haemoptysis [Fatal]
  - Dyspnoea [Fatal]
  - Metastases to muscle [Fatal]
  - Metastases to lung [Fatal]
  - Angiosarcoma [Fatal]
  - Malignant neoplasm progression [Fatal]
